FAERS Safety Report 10974206 (Version 2)
Quarter: 2015Q2

REPORT INFORMATION
  Report Type: Spontaneous
  Country: GB (occurrence: GB)
  Receive Date: 20150401
  Receipt Date: 20150416
  Transmission Date: 20150821
  Serious: Yes (Hospitalization)
  Sender: FDA-Public Use
  Company Number: GB-TEVA-550838ACC

PATIENT
  Age: 16 Year
  Sex: Female

DRUGS (3)
  1. FLUOXETINE [Suspect]
     Active Substance: FLUOXETINE\FLUOXETINE HYDROCHLORIDE
     Indication: DEPRESSED MOOD
     Dosage: 20 MILLIGRAM DAILY;
     Route: 048
     Dates: start: 201503, end: 20150316
  2. FLUOXETINE [Suspect]
     Active Substance: FLUOXETINE\FLUOXETINE HYDROCHLORIDE
     Indication: DEPRESSED MOOD
     Dosage: 16 MILLIGRAM DAILY; DOSE INCREASED FROM 16MG TO 20MG JUST OVER A WEEK BEFORE ADMISSION
     Route: 048
     Dates: end: 201503
  3. CITALOPRAM [Concomitant]
     Active Substance: CITALOPRAM HYDROBROMIDE
     Indication: DEPRESSED MOOD
     Dosage: SWITCHED TO FLUOXETINE 3 WEEKS AGO

REACTIONS (2)
  - Muscle twitching [Recovered/Resolved]
  - Tic [Unknown]
